FAERS Safety Report 20760019 (Version 1)
Quarter: 2022Q2

REPORT INFORMATION
  Report Type: Spontaneous
  Country: JP (occurrence: JP)
  Receive Date: 20220427
  Receipt Date: 20220427
  Transmission Date: 20220721
  Serious: Yes (Hospitalization)
  Sender: FDA-Public Use
  Company Number: JP-STRIDES ARCOLAB LIMITED-2022SP004540

PATIENT
  Age: 92 Year
  Sex: Female
  Weight: 32.2 kg

DRUGS (7)
  1. VERAPAMIL [Interacting]
     Active Substance: VERAPAMIL HYDROCHLORIDE
     Indication: Cardiac failure chronic
     Dosage: 40 MILLIGRAM
     Route: 065
  2. ZOLPIDEM [Interacting]
     Active Substance: ZOLPIDEM TARTRATE
     Indication: Insomnia
     Dosage: 10 MILLIGRAM
     Route: 065
  3. FUROSEMIDE [Interacting]
     Active Substance: FUROSEMIDE
     Indication: Cardiac failure chronic
     Dosage: 20 MILLIGRAM
     Route: 065
  4. DULOXETINE [Interacting]
     Active Substance: DULOXETINE
     Indication: Pain
     Dosage: 20 MILLIGRAM PER DAY
     Route: 065
     Dates: start: 2019
  5. LOXOPROFEN [Interacting]
     Active Substance: LOXOPROFEN
     Indication: Osteoarthritis
     Dosage: 60 MILLIGRAM
     Route: 065
  6. LANSOPRAZOLE [Interacting]
     Active Substance: LANSOPRAZOLE
     Indication: Product used for unknown indication
     Dosage: 15 MILLIGRAM
     Route: 065
  7. MAGNESIUM OXIDE [Interacting]
     Active Substance: MAGNESIUM OXIDE
     Indication: Product used for unknown indication
     Dosage: 330 MILLIGRAM
     Route: 065

REACTIONS (3)
  - Inappropriate antidiuretic hormone secretion [Recovered/Resolved]
  - Drug interaction [Unknown]
  - Off label use [Unknown]
